FAERS Safety Report 25524886 (Version 2)
Quarter: 2025Q3

REPORT INFORMATION
  Report Type: Spontaneous
  Country: EU (occurrence: EU)
  Receive Date: 20250707
  Receipt Date: 20250808
  Transmission Date: 20251021
  Serious: Yes (Hospitalization)
  Sender: PFIZER
  Company Number: EU-TAKEDA-2025TUS040661

PATIENT
  Sex: Male
  Weight: 64 kg

DRUGS (4)
  1. ADCETRIS [Suspect]
     Active Substance: BRENTUXIMAB VEDOTIN
     Indication: Angioimmunoblastic T-cell lymphoma
     Route: 065
     Dates: start: 20250425
  2. ADCETRIS [Suspect]
     Active Substance: BRENTUXIMAB VEDOTIN
     Indication: T-cell lymphoma stage IV
  3. BENDAMUSTINE HYDROCHLORIDE [Suspect]
     Active Substance: BENDAMUSTINE HYDROCHLORIDE
     Indication: Angioimmunoblastic T-cell lymphoma
     Route: 042
     Dates: start: 20250425
  4. BENDAMUSTINE HYDROCHLORIDE [Suspect]
     Active Substance: BENDAMUSTINE HYDROCHLORIDE
     Indication: T-cell lymphoma stage IV

REACTIONS (4)
  - Infection [Unknown]
  - Hypersensitivity [Unknown]
  - Weight decreased [Unknown]
  - Off label use [Unknown]
